FAERS Safety Report 5096452-7 (Version None)
Quarter: 2006Q3

REPORT INFORMATION
  Report Type: 
  Country: None (occurrence: None)
  Receive Date: 20060905
  Receipt Date: 20060831
  Transmission Date: 20061208
  Serious: Yes (Death)
  Sender: FDA-Public Use
  Company Number: JP-BRISTOL-MYERS SQUIBB COMPANY-13495734

PATIENT
  Age: 58 Year
  Sex: Male

DRUGS (2)
  1. TAXOL [Suspect]
     Indication: THYMOMA
     Route: 041
     Dates: start: 20060711, end: 20060802
  2. PARAPLATIN [Suspect]
     Indication: THYMOMA
     Route: 041
     Dates: start: 20060711, end: 20060802

REACTIONS (1)
  - RHABDOMYOLYSIS [None]
